FAERS Safety Report 15887680 (Version 4)
Quarter: 2019Q2

REPORT INFORMATION
  Report Type: Spontaneous
  Country: JP (occurrence: JP)
  Receive Date: 20190130
  Receipt Date: 20190402
  Transmission Date: 20190711
  Serious: Yes (Other)
  Sender: FDA-Public Use
  Company Number: JP-ROCHE-2148977

PATIENT
  Age: 82 Year
  Sex: Male

DRUGS (9)
  1. XELODA [Suspect]
     Active Substance: CAPECITABINE
     Route: 048
  2. HERCEPTIN [Suspect]
     Active Substance: TRASTUZUMAB
     Dosage: SECOND DOSE
     Route: 041
  3. XELODA [Suspect]
     Active Substance: CAPECITABINE
     Route: 048
  4. HERCEPTIN [Suspect]
     Active Substance: TRASTUZUMAB
     Indication: GASTRIC CANCER
     Dosage: FIRST DOSE
     Route: 041
  5. PACLITAXEL. [Concomitant]
     Active Substance: PACLITAXEL
     Indication: METASTASIS
     Route: 065
  6. XELODA [Suspect]
     Active Substance: CAPECITABINE
     Route: 048
  7. CISPLATIN. [Suspect]
     Active Substance: CISPLATIN
     Indication: GASTRIC CANCER
     Dosage: DOSE INTERVAL UNCERTAINTY
     Route: 041
  8. RAMUCIRUMAB [Concomitant]
     Active Substance: RAMUCIRUMAB
     Indication: METASTASIS
     Route: 065
  9. XELODA [Suspect]
     Active Substance: CAPECITABINE
     Indication: GASTRIC CANCER
     Route: 048

REACTIONS (6)
  - Neutropenia [Unknown]
  - Cardiotoxicity [Unknown]
  - Metastases to lung [Unknown]
  - Metastases to lymph nodes [Unknown]
  - Metastases to liver [Unknown]
  - Palmar-plantar erythrodysaesthesia syndrome [Unknown]
